FAERS Safety Report 5848293-8 (Version None)
Quarter: 2008Q3

REPORT INFORMATION
  Report Type: 
  Country: None (occurrence: None)
  Receive Date: 20080814
  Receipt Date: 20080814
  Transmission Date: 20090109
  Serious: Yes (Life-Threatening)
  Sender: FDA-Public Use
  Company Number: None

PATIENT
  Age: 65 Year
  Sex: Female
  Weight: 68.0396 kg

DRUGS (2)
  1. VAGIFEM [Suspect]
     Indication: ATROPHIC VULVOVAGINITIS
     Dosage: 1 TABLET 2 TIMES PER WEEK VAG
     Route: 067
     Dates: start: 20030515, end: 20080515
  2. VAGIFEM [Suspect]
     Indication: VULVOVAGINAL DRYNESS
     Dosage: 1 TABLET 2 TIMES PER WEEK VAG
     Route: 067
     Dates: start: 20030515, end: 20080515

REACTIONS (1)
  - BREAST CANCER IN SITU [None]
